FAERS Safety Report 4757305-4 (Version None)
Quarter: 2005Q3

REPORT INFORMATION
  Report Type: 
  Country: None (occurrence: None)
  Receive Date: 20050831
  Receipt Date: 20050729
  Transmission Date: 20060218
  Serious: Yes (Disabling)
  Sender: FDA-Public Use
  Company Number: PHEH2005US08405

PATIENT
  Sex: Female

DRUGS (5)
  1. FEMARA [Suspect]
     Indication: BREAST CANCER
     Dosage: 2.5 MG, QD
     Dates: start: 20040507, end: 20050501
  2. SYNTHROID [Concomitant]
     Dosage: 0.1 MG, QD
     Route: 048
  3. CALAN [Concomitant]
     Dosage: 180 MG, QD
     Route: 048
  4. LIPITOR [Concomitant]
     Dosage: 10 MG, QD
     Route: 048
  5. TAMOXIFEN CITRATE [Suspect]

REACTIONS (9)
  - ABASIA [None]
  - ARTHRALGIA [None]
  - BACK PAIN [None]
  - BONE PAIN [None]
  - MOBILITY DECREASED [None]
  - MUSCULOSKELETAL STIFFNESS [None]
  - MYALGIA [None]
  - PAIN IN EXTREMITY [None]
  - URINE FLOW DECREASED [None]
